FAERS Safety Report 5764214-0 (Version None)
Quarter: 2008Q2

REPORT INFORMATION
  Report Type: 
  Country: None (occurrence: None)
  Receive Date: 20080610
  Receipt Date: 20080522
  Transmission Date: 20081010
  Serious: Yes (Death)
  Sender: FDA-Public Use
  Company Number: US-GENENTECH-261715

PATIENT
  Sex: Male
  Weight: 96.145 kg

DRUGS (18)
  1. HUMATROPE [Suspect]
     Indication: PRADER-WILLI SYNDROME
     Dosage: 12 UNIT, QD
     Route: 058
     Dates: start: 20070914
  2. HUMATROPE [Suspect]
     Dosage: 28 UNIT, QD
     Route: 058
     Dates: start: 20080326
  3. NORVASC [Concomitant]
     Indication: CARDIAC FAILURE CONGESTIVE
     Dosage: 5 MG, QD
     Route: 048
  4. NORVASC [Concomitant]
     Indication: HYPERTENSION
  5. ASPIRIN [Concomitant]
     Indication: DRUG USE FOR UNKNOWN INDICATION
     Dosage: 81 MG, QD
     Route: 048
  6. DIGOXIN [Concomitant]
     Indication: CARDIAC FAILURE CONGESTIVE
     Dosage: 0.25 MG, QD
  7. FLONASE [Concomitant]
     Indication: DRUG USE FOR UNKNOWN INDICATION
     Dosage: 2 UNK, BID
     Route: 045
  8. GLYBURIDE [Concomitant]
     Indication: TYPE 2 DIABETES MELLITUS
     Dosage: 5 MG, BID
  9. LANTUS [Concomitant]
     Indication: TYPE 2 DIABETES MELLITUS
     Dosage: 60 UNIT, QHS
     Route: 058
  10. NOVOLOG [Concomitant]
     Indication: TYPE 2 DIABETES MELLITUS
     Dosage: 15 UNIT, UNK
     Route: 058
  11. COZAAR [Concomitant]
     Indication: HYPERTENSION
     Dosage: 25 MG, QD
  12. COZAAR [Concomitant]
     Indication: CARDIAC FAILURE CONGESTIVE
  13. METFORMIN HCL [Concomitant]
     Indication: TYPE 2 DIABETES MELLITUS
     Dosage: 1000 MG, BID
     Route: 048
  14. TOPROL-XL [Concomitant]
     Indication: HYPERTENSION
     Dosage: 25 MG, QD
     Route: 048
  15. TOPROL-XL [Concomitant]
     Indication: CARDIAC FAILURE CONGESTIVE
  16. ZOCOR [Concomitant]
     Indication: HYPERLIPIDAEMIA
     Dosage: 40 MG, QHS
     Route: 048
  17. ZANTAC [Concomitant]
     Indication: GASTROOESOPHAGEAL REFLUX DISEASE
     Dosage: 150 MG, QD
  18. POTASSIUM CHLORIDE [Concomitant]
     Indication: DRUG USE FOR UNKNOWN INDICATION
     Dosage: 20 MEQ, QD

REACTIONS (1)
  - DEATH [None]
